FAERS Safety Report 9225884 (Version 1)
Quarter: 2013Q2

REPORT INFORMATION
  Report Type: Spontaneous
  Country: US (occurrence: US)
  Receive Date: 20130411
  Receipt Date: 20130411
  Transmission Date: 20140414
  Serious: No
  Sender: FDA-Public Use
  Company Number: US-ASTELLAS-2012US004549

PATIENT
  Sex: Female

DRUGS (1)
  1. PROTOPIC [Suspect]
     Indication: ECZEMA EYELIDS
     Dosage: 0.1 %, BID
     Route: 061

REACTIONS (6)
  - Drug ineffective [Unknown]
  - Eczema [Recovered/Resolved]
  - Application site burn [Recovered/Resolved]
  - Application site erythema [Recovered/Resolved]
  - Application site oedema [Recovered/Resolved]
  - Application site pruritus [Recovered/Resolved]
